FAERS Safety Report 6404831-8 (Version None)
Quarter: 2009Q4

REPORT INFORMATION
  Report Type: 
  Country: None (occurrence: None)
  Receive Date: 20091016
  Receipt Date: 20091002
  Transmission Date: 20100525
  Serious: Yes (Death, Other)
  Sender: FDA-Public Use
  Company Number: FR-GENENTECH-292046

PATIENT

DRUGS (1)
  1. RITUXIMAB [Suspect]
     Indication: CASTLEMAN'S DISEASE
     Dosage: 375 MG/M2, 1/WEEK
     Route: 042

REACTIONS (22)
  - ACUTE RESPIRATORY FAILURE [None]
  - BRONCHITIS [None]
  - CASTLEMAN'S DISEASE [None]
  - CLOSTRIDIUM COLITIS [None]
  - DACRYOCYSTITIS [None]
  - DEATH [None]
  - DERMATITIS [None]
  - DIARRHOEA INFECTIOUS [None]
  - DISEASE PROGRESSION [None]
  - HELMINTHIC INFECTION [None]
  - INFECTION [None]
  - KAPOSI'S SARCOMA [None]
  - LYMPHADENITIS BACTERIAL [None]
  - MENINGITIS [None]
  - NASOPHARYNGITIS [None]
  - NEUTROPENIA [None]
  - ONYCHOMYCOSIS [None]
  - PNEUMONIA [None]
  - RESPIRATORY TRACT INFECTION VIRAL [None]
  - SERUM SICKNESS [None]
  - SYPHILIS [None]
  - VARICELLA [None]
